FAERS Safety Report 4620801-4 (Version None)
Quarter: 2005Q1

REPORT INFORMATION
  Report Type: 
  Country: None (occurrence: None)
  Receive Date: 20050325
  Receipt Date: 20050310
  Transmission Date: 20050727
  Serious: Yes (Other)
  Sender: FDA-Public Use
  Company Number: 430015K05USA

PATIENT
  Age: 49 Year
  Sex: Male
  Weight: 88.2246 kg

DRUGS (12)
  1. NOVANTRONE [Suspect]
     Indication: MULTIPLE SCLEROSIS
     Dosage: 12 MG/M2, 1 IN 3 MONTHS, NOT
     Dates: start: 20030519, end: 20041203
  2. PREDNISONE [Concomitant]
  3. SOLU-MEDROL [Concomitant]
  4. AMBIEN [Concomitant]
  5. HYDROCODONE BITARTRATE [Concomitant]
  6. HYDROCHLOROTHIAZIDE [Concomitant]
  7. BACLOFEN [Concomitant]
  8. ZANAFLEX [Concomitant]
  9. PROVIGIL [Concomitant]
  10. ZESTRIL [Concomitant]
  11. EFFEXOR [Concomitant]
  12. VALIUM [Concomitant]

REACTIONS (3)
  - EJECTION FRACTION DECREASED [None]
  - JOINT SWELLING [None]
  - MULTIPLE GATED ACQUISITION SCAN ABNORMAL [None]
